FAERS Safety Report 11399634 (Version 1)
Quarter: 2015Q3

REPORT INFORMATION
  Report Type: Spontaneous
  Country: US (occurrence: None)
  Receive Date: 20150819
  Receipt Date: 20150819
  Transmission Date: 20151125
  Serious: Yes (Other)
  Sender: FDA-Public Use
  Company Number: None

PATIENT
  Age: 17 Year
  Sex: Female

DRUGS (1)
  1. HUMIRA [Suspect]
     Active Substance: ADALIMUMAB
     Indication: CROHN^S DISEASE
     Dosage: CROHN^S TAPER SCHEDULE
     Route: 058
     Dates: start: 20150805

REACTIONS (2)
  - Anorectal disorder [None]
  - Rash [None]

NARRATIVE: CASE EVENT DATE: 20150817
